FAERS Safety Report 12952000 (Version 3)
Quarter: 2016Q4

REPORT INFORMATION
  Report Type: Report from Study
  Country: US (occurrence: US)
  Receive Date: 20161117
  Receipt Date: 20161228
  Transmission Date: 20170207
  Serious: No
  Sender: FDA-Public Use
  Company Number: PHEH2016US029961

PATIENT
  Sex: Female

DRUGS (2)
  1. COSENTYX [Suspect]
     Active Substance: SECUKINUMAB
     Dosage: 300 MG, QMO
     Route: 065
     Dates: start: 20161014
  2. COSENTYX [Suspect]
     Active Substance: SECUKINUMAB
     Indication: PRODUCT USED FOR UNKNOWN INDICATION
     Dosage: 300 MG, UNK
     Route: 065

REACTIONS (12)
  - Musculoskeletal pain [Unknown]
  - Bradyphrenia [Unknown]
  - Joint injury [Unknown]
  - Arthralgia [Unknown]
  - Fatigue [Unknown]
  - Tongue discomfort [Unknown]
  - Malaise [Unknown]
  - Bowel movement irregularity [Unknown]
  - Rash [Unknown]
  - Stomatitis [Unknown]
  - Back disorder [Unknown]
  - Arthropathy [Unknown]
